FAERS Safety Report 24816187 (Version 2)
Quarter: 2025Q1

REPORT INFORMATION
  Report Type: Spontaneous
  Country: US (occurrence: US)
  Receive Date: 20250107
  Receipt Date: 20250206
  Transmission Date: 20250409
  Serious: Yes (Life-Threatening, Hospitalization, Other)
  Sender: PFIZER
  Company Number: US-PFIZER INC-202500000926

PATIENT
  Age: 85 Year
  Sex: Male
  Weight: 86.621 kg

DRUGS (10)
  1. DOCETAXEL [Suspect]
     Active Substance: DOCETAXEL
     Indication: Prostate cancer
     Dates: start: 20241210, end: 20241210
  2. DOCETAXEL [Suspect]
     Active Substance: DOCETAXEL
     Dosage: 150 MG, EVERY3 WEEKS
     Route: 042
     Dates: start: 20241210, end: 20241210
  3. AMLODIPINE [Concomitant]
     Active Substance: AMLODIPINE BESYLATE
     Dosage: 2.5 MG, 1X/DAY
     Route: 048
  4. ELIQUIS [Concomitant]
     Active Substance: APIXABAN
     Dosage: 2.5 MG, 2X/DAY
     Route: 048
  5. FUROSEMIDE [Concomitant]
     Active Substance: FUROSEMIDE
     Dosage: 40 MG, 1X/DAY
     Route: 048
  6. ROSUVASTATIN [Concomitant]
     Active Substance: ROSUVASTATIN
     Dosage: 10 MG, ALTERNATE DAY
     Route: 048
  7. TADALAFIL [Concomitant]
     Active Substance: TADALAFIL
     Dosage: 40 MG, 1X/DAY
     Route: 048
  8. BENZONATATE [Concomitant]
     Active Substance: BENZONATATE
     Dosage: 100 MG, 3X/DAY
     Route: 048
  9. ZYTIGA [Concomitant]
     Active Substance: ABIRATERONE ACETATE
     Indication: Prostate cancer metastatic
     Dosage: UNK UNK, 1X/DAY
  10. FIRMAGON [Concomitant]
     Active Substance: DEGARELIX ACETATE
     Dosage: 80 MG, MONTHLY

REACTIONS (7)
  - Flushing [Recovered/Resolved]
  - Dizziness [Recovered/Resolved]
  - Loss of consciousness [Recovered/Resolved]
  - Skin discolouration [Recovered/Resolved]
  - Pulse absent [Recovered/Resolved]
  - Unresponsive to stimuli [Recovered/Resolved]
  - Cardiac arrest [Recovered/Resolved]

NARRATIVE: CASE EVENT DATE: 20241210
